FAERS Safety Report 5472963-7 (Version None)
Quarter: 2007Q4

REPORT INFORMATION
  Report Type: 
  Country: None (occurrence: None)
  Receive Date: 20071001
  Receipt Date: 20070116
  Transmission Date: 20080405
  Serious: No
  Sender: FDA-Public Use
  Company Number: US-ASTRAZENECA-2007UW00840

PATIENT
  Age: 60 Year
  Sex: Female

DRUGS (6)
  1. ARIMIDEX [Suspect]
     Route: 048
     Dates: start: 20030101
  2. LITHIUM [Concomitant]
  3. GLYBURIDE [Concomitant]
  4. SEROQUEL [Concomitant]
     Route: 048
  5. XANAX [Concomitant]
  6. ZANTAC [Concomitant]

REACTIONS (5)
  - CONFUSIONAL STATE [None]
  - HEADACHE [None]
  - MALAISE [None]
  - NASAL CONGESTION [None]
  - NAUSEA [None]
